FAERS Safety Report 15414810 (Version 4)
Quarter: 2019Q1

REPORT INFORMATION
  Report Type: Report from Study
  Country: CO (occurrence: CO)
  Receive Date: 20180921
  Receipt Date: 20190320
  Transmission Date: 20190417
  Serious: Yes (Other)
  Sender: FDA-Public Use
  Company Number: CO-INCYTE CORPORATION-2017IN005411

PATIENT

DRUGS (3)
  1. PEPSAMAR [Concomitant]
     Indication: PRODUCT USED FOR UNKNOWN INDICATION
     Dosage: UNK
     Route: 065
  2. JAKAVI [Suspect]
     Active Substance: RUXOLITINIB
     Indication: POLYCYTHAEMIA VERA
     Dosage: 20 MG, BID
     Route: 048
     Dates: start: 20161117, end: 20170907
  3. JAKAVI [Suspect]
     Active Substance: RUXOLITINIB
     Dosage: 40 MG, QD
     Route: 048

REACTIONS (17)
  - Weight decreased [Unknown]
  - Haemoglobin decreased [Unknown]
  - Burning sensation [Unknown]
  - Inappropriate schedule of product administration [Unknown]
  - Vein rupture [Unknown]
  - Hypersensitivity [Unknown]
  - Anxiety [Unknown]
  - Nausea [Unknown]
  - Nervous system disorder [Unknown]
  - Erythema [Unknown]
  - Pruritus [Unknown]
  - Pruritus generalised [Unknown]
  - Haemoglobin increased [Unknown]
  - Pain in extremity [Unknown]
  - Gastritis [Unknown]
  - Haemorrhage [Unknown]
  - Malaise [Unknown]

NARRATIVE: CASE EVENT DATE: 20170627
